FAERS Safety Report 18651929 (Version 1)
Quarter: 2020Q4

REPORT INFORMATION
  Report Type: Spontaneous
  Country: US (occurrence: US)
  Receive Date: 20201223
  Receipt Date: 20201223
  Transmission Date: 20210114
  Serious: Yes (Life-Threatening, Other)
  Sender: FDA-Public Use
  Company Number: US-009507513-2012USA009128

PATIENT
  Age: 92 Year
  Sex: Male

DRUGS (17)
  1. SENNOSIDES. [Concomitant]
     Active Substance: SENNOSIDES
     Dosage: UNK UKN, UNK
  2. RANITIDINE. [Concomitant]
     Active Substance: RANITIDINE
     Dosage: 300 MG, UNK
  3. ISOSORBIDE. [Concomitant]
     Active Substance: ISOSORBIDE
     Dosage: 240 MILLIGRAM, QD (120 MG, BID)
  4. ALLEGRA [Concomitant]
     Active Substance: FEXOFENADINE HYDROCHLORIDE
     Dosage: 180 MG, UNK
  5. TESTOSTERONE. [Concomitant]
     Active Substance: TESTOSTERONE
     Dosage: 1 DF, EVERY MONTH
  6. EXELON [Suspect]
     Active Substance: RIVASTIGMINE TARTRATE
     Dosage: UNK UKN, UNK
     Route: 048
  7. BETOPIC [Concomitant]
     Dosage: UNK UKN, UNK
  8. OCUVITE [Concomitant]
     Active Substance: VITAMINS
     Dosage: DOSE: 1 (UNIT NOT PROVIDED), UNK UKN, QD
  9. SULFA (SULFACETAMIDE SODIUM (+) SULFADIAZINE (+) SULFAMETHAZINE) [Suspect]
     Active Substance: SULFACETAMIDE\SULFADIAZINE\SULFAMETHAZINE\SULFAMERAZINE
     Dosage: UNK UKN, UNK
  10. LASIX [Concomitant]
     Active Substance: FUROSEMIDE
     Dosage: 20 MG, UNK
  11. ANTIVERT [Concomitant]
     Active Substance: MECLIZINE HYDROCHLORIDE
     Dosage: UNK UKN, UNK
  12. PENICILLIN G SODIUM. [Suspect]
     Active Substance: PENICILLIN G SODIUM
     Dosage: UNK UKN, UNK
  13. EXELON [Suspect]
     Active Substance: RIVASTIGMINE TARTRATE
     Dosage: 9.5 MG, QD
     Route: 062
  14. FOSAMAX [Suspect]
     Active Substance: ALENDRONATE SODIUM
     Dosage: UNK UKN, UNK
  15. LEVOTHYROXINE SODIUM. [Concomitant]
     Active Substance: LEVOTHYROXINE SODIUM
     Dosage: 75 MG, QD
  16. TRAVATAN [Concomitant]
     Active Substance: TRAVOPROST
     Dosage: UNK
  17. SINGULAIR [Concomitant]
     Active Substance: MONTELUKAST SODIUM
     Dosage: 10 MG, UNK

REACTIONS (4)
  - Drug hypersensitivity [Unknown]
  - Blindness [Unknown]
  - Incorrect product administration duration [Unknown]
  - Cardiac disorder [Unknown]
